FAERS Safety Report 17709435 (Version 1)
Quarter: 2020Q2

REPORT INFORMATION
  Report Type: Report from Study
  Country: None (occurrence: CO)
  Receive Date: 20200427
  Receipt Date: 20200427
  Transmission Date: 20200714
  Serious: Yes (Other)
  Sender: FDA-Public Use
  Company Number: CO-ABBVIE-19K-036-2849661-00

PATIENT
  Age: 50 Year
  Sex: Male
  Weight: 78 kg

DRUGS (5)
  1. HUMIRA [Suspect]
     Active Substance: ADALIMUMAB
     Route: 058
  2. HUMIRA [Suspect]
     Active Substance: ADALIMUMAB
     Indication: ANKYLOSING SPONDYLITIS
     Route: 058
     Dates: start: 20181123, end: 20190522
  3. OMEPRAZOL [Concomitant]
     Active Substance: OMEPRAZOLE
     Indication: PRODUCT USED FOR UNKNOWN INDICATION
     Route: 048
  4. SULFASALAZINE. [Suspect]
     Active Substance: SULFASALAZINE
     Indication: PRODUCT USED FOR UNKNOWN INDICATION
     Route: 065
  5. NAPROXEN. [Suspect]
     Active Substance: NAPROXEN
     Indication: PRODUCT USED FOR UNKNOWN INDICATION
     Route: 048

REACTIONS (11)
  - Arthralgia [Unknown]
  - Spondylitis [Not Recovered/Not Resolved]
  - Therapeutic product effect incomplete [Unknown]
  - Hepatitis [Recovering/Resolving]
  - Malaise [Not Recovered/Not Resolved]
  - Pruritus [Unknown]
  - Back pain [Not Recovered/Not Resolved]
  - Hepatic steatosis [Recovering/Resolving]
  - Uveitis [Recovering/Resolving]
  - Gastritis [Unknown]
  - Fatigue [Not Recovered/Not Resolved]

NARRATIVE: CASE EVENT DATE: 201905
